FAERS Safety Report 11349401 (Version 1)
Quarter: 2015Q3

REPORT INFORMATION
  Report Type: Spontaneous
  Country: IN (occurrence: None)
  Receive Date: 20150805
  Receipt Date: 20150805
  Transmission Date: 20151125
  Serious: Yes (Congenital Anomaly)
  Sender: FDA-Public Use
  Company Number: 2015JUB00233

PATIENT

DRUGS (2)
  1. CARBAMAZEPINE (CARBAMAZEPINE) UNKNOWN [Suspect]
     Active Substance: CARBAMAZEPINE
     Indication: EPILEPSY
     Dosage: 400 TO 600 MG, 1X/DAY.
  2. FOLIC ACID (FOLIC ACID) [Concomitant]
     Active Substance: FOLIC ACID

REACTIONS (3)
  - Foetal exposure during pregnancy [None]
  - Pyelocaliectasis [None]
  - Pelvi-ureteric obstruction [None]
